FAERS Safety Report 9609996 (Version 2)
Quarter: 2013Q4

REPORT INFORMATION
  Report Type: Spontaneous
  Country: IN (occurrence: IN)
  Receive Date: 20131009
  Receipt Date: 20131015
  Transmission Date: 20140711
  Serious: Yes (Life-Threatening, Hospitalization, Other)
  Sender: FDA-Public Use
  Company Number: IN-ABBVIE-13P-078-1153587-00

PATIENT
  Age: 47 Year
  Sex: Female

DRUGS (3)
  1. VALPROIC ACID [Suspect]
     Indication: EPILEPSY
  2. LAMOTRIGINE [Suspect]
     Indication: EPILEPSY
     Route: 065
  3. CARBAMAZEPINE [Suspect]
     Indication: PRODUCT USED FOR UNKNOWN INDICATION
     Route: 065

REACTIONS (17)
  - Toxic epidermal necrolysis [Recovered/Resolved with Sequelae]
  - Drug interaction [Recovered/Resolved with Sequelae]
  - Pyrexia [Recovered/Resolved with Sequelae]
  - Mouth ulceration [Recovered/Resolved with Sequelae]
  - Blister [Recovered/Resolved with Sequelae]
  - Skin lesion [Recovered/Resolved with Sequelae]
  - Erythema [Recovered/Resolved with Sequelae]
  - Conjunctivitis [Recovered/Resolved with Sequelae]
  - Skin erosion [Recovered/Resolved with Sequelae]
  - Nikolsky^s sign [Recovered/Resolved with Sequelae]
  - Eyelid oedema [Recovered/Resolved with Sequelae]
  - Corneal scar [Recovered/Resolved with Sequelae]
  - Pigmentation disorder [Not Recovered/Not Resolved]
  - Nail dystrophy [Not Recovered/Not Resolved]
  - Nail dystrophy [Not Recovered/Not Resolved]
  - Rash maculo-papular [Recovered/Resolved with Sequelae]
  - Cross sensitivity reaction [Recovered/Resolved with Sequelae]
